FAERS Safety Report 24294598 (Version 1)
Quarter: 2024Q3

REPORT INFORMATION
  Report Type: Spontaneous
  Country: GB (occurrence: GB)
  Receive Date: 20240906
  Receipt Date: 20240906
  Transmission Date: 20241017
  Serious: Yes (Other)
  Sender: PURDUE
  Company Number: GB-MHRA-TPP13745825C22275880YC1725395239630

PATIENT
  Age: 81 Year
  Sex: Male
  Weight: 90 kg

DRUGS (17)
  1. BUPRENORPHINE [Suspect]
     Active Substance: BUPRENORPHINE
     Indication: Ill-defined disorder
     Dosage: 10 MCG, Q1H (EVERY 1 HOURS)
     Route: 062
     Dates: start: 20240815, end: 20240902
  2. MORPHINE SULFATE [Concomitant]
     Active Substance: MORPHINE SULFATE
     Indication: Ill-defined disorder
     Dosage: 2.5ML WHEN REQUIRED AND AWRE OF SIDE EFFECTS
     Route: 065
     Dates: start: 20240723, end: 20240822
  3. BUPRENORPHINE [Concomitant]
     Active Substance: BUPRENORPHINE
     Indication: Ill-defined disorder
     Dosage: APPLY ONE PATCH EVERY 7 DAYS, AFTER 7 DAYS REMO...
     Route: 065
     Dates: start: 20240812
  4. BUPRENORPHINE [Concomitant]
     Active Substance: BUPRENORPHINE
     Indication: Ill-defined disorder
     Dosage: APPLY ONE WEEKLY
     Route: 065
     Dates: start: 20240815
  5. NITROGLYCERIN [Concomitant]
     Active Substance: NITROGLYCERIN
     Indication: Ill-defined disorder
     Dosage: SPRAY ONE OR TWO DOSES UNDER TONGUE AND THEN CL...
     Route: 065
     Dates: start: 20220804
  6. ALBUTEROL [Concomitant]
     Active Substance: ALBUTEROL
     Indication: Ill-defined disorder
     Dosage: 2 PUFFS AS REQUIRED WHEN EXACERBATING WITH CHES.
     Route: 065
     Dates: start: 20230109
  7. BISOPROLOL [Concomitant]
     Active Substance: BISOPROLOL\BISOPROLOL FUMARATE
     Indication: Ill-defined disorder
     Dosage: ONE TO BE TAKEN EACH DAY IN THE MORNING
     Route: 065
     Dates: start: 20231122
  8. TIOTROPIUM BROMIDE [Concomitant]
     Active Substance: TIOTROPIUM BROMIDE
     Indication: Ill-defined disorder
     Dosage: INHALE ONE CAPSULE IN THE MORNING
     Route: 065
     Dates: start: 20231122
  9. CLOPIDOGREL [Concomitant]
     Active Substance: CLOPIDOGREL BISULFATE
     Indication: Ill-defined disorder
     Dosage: AFTER YOU FINISH ASPIRIN 300MG PLEASE START THII
     Route: 065
     Dates: start: 20231122
  10. COCODAMOL [Concomitant]
     Active Substance: ACETAMINOPHEN\CODEINE PHOSPHATE
     Indication: Ill-defined disorder
     Dosage: ONE OR TWO TO BE TAKEN FOUR TIMES A DAY
     Route: 065
     Dates: start: 20231122
  11. DILTIAZEM [Concomitant]
     Active Substance: DILTIAZEM
     Indication: Ill-defined disorder
     Dosage: ONE IN THE MORNING AND ONE AT LUNCH TIME
     Route: 065
     Dates: start: 20231122
  12. BUDESONIDE\FORMOTEROL [Concomitant]
     Active Substance: BUDESONIDE\FORMOTEROL
     Indication: Ill-defined disorder
     Dosage: SEE ADMINISTRATIVE NOTES FOR DOSAGE.
     Route: 065
     Dates: start: 20231122
  13. ISOSORBIDE MONONITRATE [Concomitant]
     Active Substance: ISOSORBIDE MONONITRATE
     Indication: Ill-defined disorder
     Dosage: TAKE ONE IN THE MORNING AND LUNCH TIME
     Route: 065
     Dates: start: 20231122
  14. LANSOPRAZOLE [Concomitant]
     Active Substance: LANSOPRAZOLE
     Indication: Ill-defined disorder
     Dosage: ONE TO BE TAKEN EACH MORNING FOR STOMACH PROTEC...
     Route: 065
     Dates: start: 20231122
  15. PRAVASTATIN [Concomitant]
     Active Substance: PRAVASTATIN
     Indication: Ill-defined disorder
     Dosage: ONE TO BE TAKEN AT NIGHT
     Route: 065
     Dates: start: 20231122
  16. RAMIPRIL [Concomitant]
     Active Substance: RAMIPRIL
     Indication: Ill-defined disorder
     Dosage: ONE TO BE TAKEN EACH DAY
     Route: 065
     Dates: start: 20231122
  17. BENDROFLUMETHIAZIDE [Concomitant]
     Active Substance: BENDROFLUMETHIAZIDE
     Indication: Ill-defined disorder
     Dosage: ONE TO BE TAKEN EACH MORNING
     Route: 065
     Dates: start: 20240510

REACTIONS (2)
  - Respiratory depression [Unknown]
  - Dyspnoea at rest [Recovered/Resolved]

NARRATIVE: CASE EVENT DATE: 20240815
